FAERS Safety Report 26036935 (Version 1)
Quarter: 2025Q4

REPORT INFORMATION
  Report Type: Spontaneous
  Country: PR (occurrence: None)
  Receive Date: 20251112
  Receipt Date: 20251112
  Transmission Date: 20260118
  Serious: Yes (Hospitalization)
  Sender: FDA-CTU
  Company Number: None

PATIENT
  Age: 67 Year
  Sex: Male

DRUGS (6)
  1. LENALIDOMIDE [Suspect]
     Active Substance: LENALIDOMIDE
     Indication: Plasma cell myeloma
     Dosage: FREQUENCY : DAILY;?
     Route: 048
     Dates: start: 20250206, end: 20251101
  2. NEURONTIN [Concomitant]
     Active Substance: GABAPENTIN
  3. FENTANYL [Concomitant]
     Active Substance: FENTANYL
  4. ACYCLOVIR [Concomitant]
     Active Substance: ACYCLOVIR
  5. ASPIRIN [Concomitant]
     Active Substance: ASPIRIN
  6. DARZALEX [Concomitant]
     Active Substance: DARATUMUMAB

REACTIONS (2)
  - Pneumonia [None]
  - Mobility decreased [None]

NARRATIVE: CASE EVENT DATE: 20251102
